FAERS Safety Report 11762375 (Version 1)
Quarter: 2015Q4

REPORT INFORMATION
  Report Type: Spontaneous
  Country: US (occurrence: US)
  Receive Date: 20151120
  Receipt Date: 20151120
  Transmission Date: 20160304
  Serious: No
  Sender: FDA-Public Use
  Company Number: US-ELI_LILLY_AND_COMPANY-US201211008214

PATIENT
  Age: 71 Year
  Sex: Female

DRUGS (5)
  1. CALCIUM MAGNESIUM [Concomitant]
     Active Substance: CALCIUM\MAGNESIUM
     Dosage: UNK, UNKNOWN
     Route: 065
  2. POTASSIUM CITRATE. [Concomitant]
     Active Substance: POTASSIUM CITRATE
     Indication: NEPHROLITHIASIS
     Dosage: UNK, UNKNOWN
     Route: 065
  3. CITRACAL                           /00751520/ [Concomitant]
     Dosage: UNK, UNKNOWN
     Route: 065
  4. FORTEO [Suspect]
     Active Substance: TERIPARATIDE
     Indication: OSTEOPOROSIS
     Dosage: 20 UG, QD
     Route: 065
     Dates: start: 201203
  5. FORTEO [Suspect]
     Active Substance: TERIPARATIDE
     Dosage: 20 UG, QD
     Route: 065
     Dates: start: 201203

REACTIONS (8)
  - Foot deformity [Unknown]
  - Arthritis [Unknown]
  - Gait disturbance [Unknown]
  - Gout [Not Recovered/Not Resolved]
  - Urine calcium increased [Unknown]
  - Nephrolithiasis [Not Recovered/Not Resolved]
  - Blood uric acid increased [Unknown]
  - Blood calcium increased [Unknown]

NARRATIVE: CASE EVENT DATE: 201206
